FAERS Safety Report 6242371-X (Version None)
Quarter: 2009Q2

REPORT INFORMATION
  Report Type: 
  Country: None (occurrence: None)
  Receive Date: 20090622
  Receipt Date: 20090622
  Transmission Date: 20091009
  Serious: No
  Sender: FDA-Public Use
  Company Number: None

PATIENT
  Age: 61 Year
  Weight: 108.8633 kg

DRUGS (1)
  1. ZICAM NASAL GEL SWABS MATRIMIXX [Suspect]
     Indication: NASOPHARYNGITIS
     Dosage: 1 TUBE EVERY 4 HOURS NASAL
     Route: 045
     Dates: start: 20090304, end: 20090327

REACTIONS (1)
  - HYPOSMIA [None]
